FAERS Safety Report 6309564-4 (Version None)
Quarter: 2009Q3

REPORT INFORMATION
  Report Type: 
  Country: None (occurrence: None)
  Receive Date: 20090814
  Receipt Date: 20090804
  Transmission Date: 20100115
  Serious: Yes (Other)
  Sender: FDA-Public Use
  Company Number: PHHY2009ES23426

PATIENT
  Age: 40 Year
  Sex: Male

DRUGS (12)
  1. OXCARBAZEPINE [Suspect]
     Indication: PSYCHOMOTOR HYPERACTIVITY
     Dosage: 300 MG/DAY
  2. OXCARBAZEPINE [Suspect]
     Dosage: 1800 MG/DAY
  3. OXCARBAZEPINE [Suspect]
     Dosage: 600 MG/DAY
  4. OXCARBAZEPINE [Suspect]
     Dosage: 900 MG/DAY
  5. OXCARBAZEPINE [Suspect]
     Dosage: 600 MG/DAY DIVIDED IN 3 DAILY DOSES
  6. QUETIAPINE FUMARATE [Concomitant]
     Dosage: 600 MG/DAY
  7. GABAPENTIN [Concomitant]
     Dosage: 900 MG/DAY
  8. GABAPENTIN [Concomitant]
     Dosage: 1800 MG/DAY
  9. GABAPENTIN [Concomitant]
     Dosage: 1600 MG/DAY
  10. LEVOMEPROMAZINE [Concomitant]
     Dosage: 100 MG/DAY
  11. CLORAZEPATE DIPOTASSIUM [Concomitant]
     Dosage: 150 MG/DAY
  12. HALOPERIDOL [Concomitant]
     Dosage: 8 MG/DAY

REACTIONS (7)
  - ACUTE PSYCHOSIS [None]
  - AGITATION [None]
  - ANXIETY [None]
  - ASTHENIA [None]
  - FATIGUE [None]
  - HYPONATRAEMIA [None]
  - IRRITABILITY [None]
